FAERS Safety Report 15030391 (Version 1)
Quarter: 2018Q2

REPORT INFORMATION
  Report Type: Spontaneous
  Country: US (occurrence: US)
  Receive Date: 20180619
  Receipt Date: 20180619
  Transmission Date: 20180711
  Serious: Yes (Hospitalization)
  Sender: FDA-Public Use
  Company Number: US-US WORLDMEDS, LLC-STA_00019184

PATIENT
  Sex: Male

DRUGS (1)
  1. APOMORPHINE HYDROCHLORIDE [Suspect]
     Active Substance: APOMORPHINE HYDROCHLORIDE
     Indication: PARKINSON^S DISEASE
     Dosage: 3MG
     Dates: end: 200901

REACTIONS (8)
  - Hip fracture [Recovering/Resolving]
  - Tremor [Recovering/Resolving]
  - Fall [Recovering/Resolving]
  - Drooling [Recovering/Resolving]
  - Head injury [Recovering/Resolving]
  - Anaemia [Recovering/Resolving]
  - Tooth injury [Recovering/Resolving]
  - Hypotension [Recovering/Resolving]
